FAERS Safety Report 23934364 (Version 1)
Quarter: 2024Q2

REPORT INFORMATION
  Report Type: Spontaneous
  Country: RU (occurrence: RU)
  Receive Date: 20240603
  Receipt Date: 20240603
  Transmission Date: 20240716
  Serious: Yes (Other)
  Sender: FDA-Public Use
  Company Number: RU-AMERICAN REGENT INC-2024002046

PATIENT
  Sex: Female

DRUGS (2)
  1. FERINJECT [Suspect]
     Active Substance: FERRIC CARBOXYMALTOSE
     Indication: Iron deficiency anaemia
     Dosage: FIRST DOSE (1000 MILLIGRAM)
  2. FERINJECT [Suspect]
     Active Substance: FERRIC CARBOXYMALTOSE
     Dosage: SECOND DOSE WAS SCHEDULED TO BE ADMINISTERED AT A DOSE OF 1000 MG

REACTIONS (5)
  - Maternal exposure during pregnancy [Unknown]
  - Overdose [Unknown]
  - Urticaria [Recovered/Resolved]
  - Chest pain [Recovered/Resolved]
  - Inappropriate schedule of product administration [Unknown]
